FAERS Safety Report 18191306 (Version 1)
Quarter: 2020Q3

REPORT INFORMATION
  Report Type: Spontaneous
  Country: FR (occurrence: FR)
  Receive Date: 20200825
  Receipt Date: 20200825
  Transmission Date: 20201103
  Serious: Yes (Other)
  Sender: FDA-Public Use
  Company Number: FR-TEVA-2020-FR-1817934

PATIENT
  Age: 54 Year
  Sex: Female

DRUGS (5)
  1. SECUKINUMAB. [Suspect]
     Active Substance: SECUKINUMAB
     Indication: PSORIATIC ARTHROPATHY
     Dosage: INITIAL DOSE NOT STATED
     Route: 065
  2. ADALIMUMAB [Suspect]
     Active Substance: ADALIMUMAB
     Indication: PSORIATIC ARTHROPATHY
     Dosage: INITIAL DOSE NOT STATED
     Route: 065
  3. PREDNISONE. [Suspect]
     Active Substance: PREDNISONE
     Indication: VASCULITIS
     Dosage: 1 MG/KG DAILY; GRADUAL TAPERING
     Route: 065
  4. METHOTREXATE. [Suspect]
     Active Substance: METHOTREXATE
     Indication: PSORIATIC ARTHROPATHY
     Dosage: INITIAL DOSE NOT STATED
     Route: 065
  5. PREDNISONE. [Suspect]
     Active Substance: PREDNISONE
     Dosage: SLOW TAPERING OF DOSE
     Route: 065

REACTIONS (7)
  - Purpura [Recovered/Resolved]
  - Paradoxical psoriasis [Recovered/Resolved]
  - Pustular psoriasis [Recovered/Resolved]
  - Rebound effect [Recovered/Resolved]
  - Vasculitis gastrointestinal [Recovered/Resolved]
  - Diarrhoea [Recovered/Resolved]
  - Cutaneous vasculitis [Recovered/Resolved]
